FAERS Safety Report 9142604 (Version 4)
Quarter: 2013Q3

REPORT INFORMATION
  Report Type: Spontaneous
  Country: US (occurrence: US)
  Receive Date: 20130306
  Receipt Date: 20130820
  Transmission Date: 20140515
  Serious: Yes (Hospitalization)
  Sender: FDA-Public Use
  Company Number: US-JNJFOC-20121109124

PATIENT
  Sex: Male

DRUGS (9)
  1. RISPERDAL [Suspect]
     Indication: OPPOSITIONAL DEFIANT DISORDER
     Route: 048
     Dates: start: 1995, end: 2006
  2. RISPERDAL [Suspect]
     Indication: ATTENTION DEFICIT/HYPERACTIVITY DISORDER
     Route: 048
     Dates: start: 1995, end: 2006
  3. RISPERDAL [Suspect]
     Indication: BIPOLAR DISORDER
     Route: 048
     Dates: start: 1995, end: 2006
  4. EFFEXOR [Suspect]
     Indication: PSYCHOTIC DISORDER
     Route: 065
  5. CELEXA [Suspect]
     Indication: PSYCHOTIC DISORDER
     Route: 065
  6. LITHIUM [Suspect]
     Indication: PSYCHOTIC DISORDER
     Route: 065
  7. GEODON [Suspect]
     Indication: PSYCHOTIC DISORDER
     Route: 065
  8. DEPAKOTE [Suspect]
     Indication: PSYCHOTIC DISORDER
     Route: 065
  9. SEROQUEL [Suspect]
     Indication: PRODUCT USED FOR UNKNOWN INDICATION
     Route: 065

REACTIONS (11)
  - Suicidal ideation [Unknown]
  - Homicidal ideation [Unknown]
  - Aggression [Unknown]
  - Affect lability [Unknown]
  - Sedation [Unknown]
  - Obesity [Unknown]
  - Gynaecomastia [Unknown]
  - Muscle twitching [Unknown]
  - Fatigue [Unknown]
  - Drug effect incomplete [Unknown]
  - Treatment noncompliance [Unknown]
